FAERS Safety Report 6160338-7 (Version None)
Quarter: 2009Q2

REPORT INFORMATION
  Report Type: 
  Country: None (occurrence: None)
  Receive Date: 20090420
  Receipt Date: 20090415
  Transmission Date: 20091009
  Serious: Yes (Hospitalization)
  Sender: FDA-Public Use
  Company Number: DE-BRISTOL-MYERS SQUIBB COMPANY-14205926

PATIENT
  Age: 58 Year
  Sex: Male
  Weight: 67 kg

DRUGS (3)
  1. CETUXIMAB [Suspect]
     Indication: NON-SMALL CELL LUNG CANCER
     Dosage: 2MG/ML.05MAR08-UNK;RECENT INF B4 EVENT:23APR08;RESTARTED ON 07-MAY08-465 MG,1 IN 1 WK
     Route: 042
     Dates: start: 20080305
  2. DOCETAXEL [Suspect]
     Indication: NON-SMALL CELL LUNG CANCER
     Route: 042
     Dates: start: 20080416
  3. GEMCITABINE HCL [Suspect]
     Indication: NON-SMALL CELL LUNG CANCER
     Dosage: MOST RECENT INFUSION ON 03APR08
     Route: 042
     Dates: start: 20080305

REACTIONS (2)
  - LEUKOCYTOSIS [None]
  - PYREXIA [None]
